FAERS Safety Report 20517663 (Version 3)
Quarter: 2022Q2

REPORT INFORMATION
  Report Type: Other
  Country: US (occurrence: None)
  Receive Date: 20220225
  Receipt Date: 20220504
  Transmission Date: 20220721
  Serious: Yes (Hospitalization, Other)
  Sender: FDA-Public Use
  Company Number: US-ROCHE-2646896

PATIENT
  Sex: Female
  Weight: 57.204 kg

DRUGS (4)
  1. OCREVUS [Suspect]
     Active Substance: OCRELIZUMAB
     Indication: Relapsing-remitting multiple sclerosis
     Dosage: SUBSEQUENT DOSE 600 MG EVERY 6 MONTHS
     Route: 042
     Dates: start: 20190723
  2. OCREVUS [Suspect]
     Active Substance: OCRELIZUMAB
     Indication: Primary progressive multiple sclerosis
  3. LAMOTRIGINE [Suspect]
     Active Substance: LAMOTRIGINE
     Indication: Product used for unknown indication
     Route: 042
  4. BENADRYL [Concomitant]
     Active Substance: DIPHENHYDRAMINE HYDROCHLORIDE

REACTIONS (15)
  - Cognitive disorder [Unknown]
  - Suicide attempt [Recovered/Resolved]
  - Haemoglobin abnormal [Not Recovered/Not Resolved]
  - Herpes ophthalmic [Recovered/Resolved]
  - Mood altered [Not Recovered/Not Resolved]
  - Pruritus [Recovered/Resolved]
  - Polycystic ovaries [Not Recovered/Not Resolved]
  - Insomnia [Recovered/Resolved]
  - Immunoglobulins decreased [Not Recovered/Not Resolved]
  - Overdose [Unknown]
  - Poor venous access [Unknown]
  - Suicidal ideation [Recovered/Resolved]
  - Drug ineffective [Unknown]
  - Muscle atrophy [Not Recovered/Not Resolved]
  - Gait disturbance [Unknown]

NARRATIVE: CASE EVENT DATE: 20210101
